FAERS Safety Report 9904807 (Version 1)
Quarter: 2014Q1

REPORT INFORMATION
  Report Type: Spontaneous
  Country: ES (occurrence: None)
  Receive Date: 20140211
  Receipt Date: 20140211
  Transmission Date: 20141002
  Serious: Yes (Other)
  Sender: FDA-Public Use
  Company Number: B0966457A

PATIENT
  Sex: 0

DRUGS (2)
  1. PAZOPANIB (FORMULATION UNKNOWN) (GENERIC) (PAZOPANIB) [Suspect]
     Indication: RENAL DISORDER
     Dosage: UNK/ UNK/ ORAL
     Route: 048
  2. INTERFERON ALFA-2A [Suspect]
     Dosage: UNK/ UNK/ SUBCUTANEOUS
     Route: 058

REACTIONS (1)
  - Hepatic haematoma [None]
